FAERS Safety Report 17236566 (Version 1)
Quarter: 2020Q1

REPORT INFORMATION
  Report Type: Spontaneous
  Country: US (occurrence: US)
  Receive Date: 20200106
  Receipt Date: 20200106
  Transmission Date: 20200409
  Serious: No
  Sender: FDA-Public Use
  Company Number: US-MYLANLABS-2019M1132964

PATIENT
  Sex: Female
  Weight: 68 kg

DRUGS (1)
  1. LIDOCAINE PATCH [Suspect]
     Active Substance: LIDOCAINE
     Indication: PAIN
     Dosage: 5 PERCENT, PRN (AS NEEDED)
     Route: 003
     Dates: start: 20191223

REACTIONS (3)
  - Product adhesion issue [Recovering/Resolving]
  - Off label use [Recovering/Resolving]
  - Product quality issue [Unknown]
